FAERS Safety Report 11994756 (Version 1)
Quarter: 2016Q1

REPORT INFORMATION
  Report Type: Spontaneous
  Country: US (occurrence: US)
  Receive Date: 20160203
  Receipt Date: 20160203
  Transmission Date: 20160526
  Serious: Yes (Other)
  Sender: FDA-Public Use
  Company Number: US-UCBSA-2015025715

PATIENT
  Sex: Female

DRUGS (2)
  1. KEPPRA [Suspect]
     Active Substance: LEVETIRACETAM
     Indication: SEIZURE
     Dosage: 500MG
  2. KEPPRA [Suspect]
     Active Substance: LEVETIRACETAM
     Dosage: 1000MG

REACTIONS (5)
  - Abnormal dreams [Unknown]
  - Suicidal ideation [Unknown]
  - Nightmare [Unknown]
  - Somnolence [Unknown]
  - Emotional disorder [Unknown]
